FAERS Safety Report 8618245-3 (Version None)
Quarter: 2012Q3

REPORT INFORMATION
  Report Type: 
  Country: None (occurrence: None)
  Receive Date: 20120824
  Receipt Date: 20120801
  Transmission Date: 20120928
  Serious: No
  Sender: FDA-Public Use
  Company Number: US-009507513-1208USA001324

PATIENT

DRUGS (12)
  1. PLACEBO [Suspect]
     Indication: BIPOLAR I DISORDER
     Dosage: 1 DF, BID
     Route: 060
     Dates: start: 20120723, end: 20120731
  2. SIMVASTATIN [Suspect]
     Dosage: 1 UNK, BID
     Route: 060
     Dates: start: 20120802, end: 20120807
  3. TRAZODONE HCL [Concomitant]
     Indication: INSOMNIA
     Dosage: 50 MG, QPM
     Route: 048
     Dates: start: 20120501, end: 20120712
  4. MELATONIN [Concomitant]
     Indication: INSOMNIA
     Dosage: 10 MG, QPM
     Route: 048
     Dates: start: 20120601, end: 20120712
  5. PLACEBO [Suspect]
     Dosage: 1 UNK, BID
     Route: 060
     Dates: start: 20120802, end: 20120807
  6. BLINDED ASENAPINE MALEATE-BIPOLAR DISORDER [Suspect]
     Indication: BIPOLAR I DISORDER
     Dosage: 1 DF, BID
     Route: 060
     Dates: start: 20120723, end: 20120731
  7. SIMVASTATIN [Suspect]
     Indication: BIPOLAR I DISORDER
     Dosage: 1 DF, BID
     Route: 060
     Dates: start: 20120723, end: 20120731
  8. SIMVASTATIN [Suspect]
     Indication: BIPOLAR I DISORDER
     Dosage: 1 DF, BID
     Route: 060
     Dates: start: 20120723, end: 20120731
  9. BLINDED ASENAPINE MALEATE-BIPOLAR DISORDER [Suspect]
     Dosage: 1 UNK, BID
     Route: 060
     Dates: start: 20120802, end: 20120807
  10. SIMVASTATIN [Suspect]
     Dosage: 1 UNK, BID
     Route: 060
     Dates: start: 20120802, end: 20120807
  11. LURASIDONE HYDROCHLORIDE [Concomitant]
     Indication: BIPOLAR I DISORDER
     Dosage: 80 MG, QPM
     Route: 048
     Dates: start: 20120301, end: 20120702
  12. GUANFACINE HYDROCHLORIDE [Concomitant]
     Indication: ATTENTION DEFICIT/HYPERACTIVITY DISORDER
     Dosage: 2 MG, QD
     Route: 048
     Dates: start: 20120501

REACTIONS (3)
  - MUSCLE RIGIDITY [None]
  - MUSCULOSKELETAL STIFFNESS [None]
  - SWOLLEN TONGUE [None]
